FAERS Safety Report 24260252 (Version 1)
Quarter: 2024Q3

REPORT INFORMATION
  Report Type: Report from Study
  Country: IT (occurrence: IT)
  Receive Date: 20240828
  Receipt Date: 20240828
  Transmission Date: 20241016
  Serious: Yes (Life-Threatening)
  Sender: PFIZER
  Company Number: IT-PFIZER INC-202400244777

PATIENT
  Age: 32 Month
  Sex: Male

DRUGS (2)
  1. SIROLIMUS [Suspect]
     Active Substance: SIROLIMUS
     Indication: Vascular malformation
     Dosage: UNK
  2. SULFAMETHOXAZOLE\TRIMETHOPRIM [Concomitant]
     Active Substance: SULFAMETHOXAZOLE\TRIMETHOPRIM
     Indication: Infection prophylaxis

REACTIONS (1)
  - Aphthous ulcer [Unknown]
